FAERS Safety Report 20532372 (Version 1)
Quarter: 2022Q1

REPORT INFORMATION
  Report Type: Spontaneous
  Country: JO (occurrence: JO)
  Receive Date: 20220301
  Receipt Date: 20220301
  Transmission Date: 20220424
  Serious: Yes (Other)
  Sender: FDA-Public Use
  Company Number: JO-ORGANON-O2202JOR001921

PATIENT
  Age: 47 Year
  Sex: Female

DRUGS (1)
  1. AERIUS (DESLORATADINE) [Suspect]
     Active Substance: DESLORATADINE
     Dosage: UNK

REACTIONS (2)
  - Bradycardia [Recovered/Resolved]
  - Off label use [Unknown]
